FAERS Safety Report 8502501-3 (Version None)
Quarter: 2012Q3

REPORT INFORMATION
  Report Type: 
  Country: None (occurrence: None)
  Receive Date: 20120711
  Receipt Date: 20120602
  Transmission Date: 20120928
  Serious: No
  Sender: FDA-Public Use
  Company Number: US-BAYER-2012-055595

PATIENT

DRUGS (2)
  1. ALEVE (CAPLET) [Suspect]
     Indication: PAIN
     Dosage: 2 DF, ONCE
     Route: 048
     Dates: start: 20120602, end: 20120602
  2. GOODY POWDERS [Concomitant]
     Dosage: 2 DF, UNK
     Dates: start: 20120602

REACTIONS (1)
  - PAIN [None]
